FAERS Safety Report 21336367 (Version 1)
Quarter: 2022Q3

REPORT INFORMATION
  Report Type: Spontaneous
  Country: GB (occurrence: GB)
  Receive Date: 20220915
  Receipt Date: 20220915
  Transmission Date: 20221027
  Serious: Yes (Death, Hospitalization, Other)
  Sender: FDA-Public Use
  Company Number: None

PATIENT
  Age: 71 Year
  Sex: Female

DRUGS (4)
  1. ELOCON [Suspect]
     Active Substance: MOMETASONE FUROATE
     Indication: Decubitus ulcer
     Dosage: 100 GRAM TUBE
  2. CETOSTEARYL ALCOHOL\CHLOROCRESOL\PARAFFIN\PETROLATUM [Suspect]
     Active Substance: CETOSTEARYL ALCOHOL\CHLOROCRESOL\PARAFFIN\PETROLATUM
     Indication: Decubitus ulcer
     Dosage: 2 X 500 GRAM TUB
  3. LANOLIN\ZINC OXIDE [Suspect]
     Active Substance: LANOLIN\ZINC OXIDE
     Indication: Decubitus ulcer
     Dosage: 400G TUB, 125G TUB
  4. LANOLIN\LIGHT MINERAL OIL\PARAFFIN [Suspect]
     Active Substance: LANOLIN\LIGHT MINERAL OIL\PARAFFIN
     Indication: Decubitus ulcer
     Dosage: 125G TUB

REACTIONS (2)
  - Burns fourth degree [Fatal]
  - Product caught fire [Fatal]

NARRATIVE: CASE EVENT DATE: 20171004
